FAERS Safety Report 19839844 (Version 1)
Quarter: 2021Q3

REPORT INFORMATION
  Report Type: Spontaneous
  Country: US (occurrence: US)
  Receive Date: 20210915
  Receipt Date: 20210915
  Transmission Date: 20211014
  Serious: Yes (Hospitalization)
  Sender: FDA-Public Use
  Company Number: None

PATIENT
  Age: 78 Year
  Sex: Male
  Weight: 103.3 kg

DRUGS (3)
  1. LEUCOVORIN CALCIUM. [Suspect]
     Active Substance: LEUCOVORIN CALCIUM
     Dates: end: 20210909
  2. 5?FLUOROURACIL (5?FU) [Suspect]
     Active Substance: FLUOROURACIL
     Dates: end: 20210909
  3. IRINOTECAN LIPOSOME (MM?398, ONIVYDE) [Suspect]
     Active Substance: IRINOTECAN HYDROCHLORIDE
     Dates: end: 20210909

REACTIONS (2)
  - Atrial fibrillation [None]
  - Pneumonia [None]

NARRATIVE: CASE EVENT DATE: 20210913
